FAERS Safety Report 15611161 (Version 1)
Quarter: 2018Q4

REPORT INFORMATION
  Report Type: Spontaneous
  Country: US (occurrence: US)
  Receive Date: 20181113
  Receipt Date: 20181113
  Transmission Date: 20190205
  Serious: Yes (Hospitalization, Other)
  Sender: FDA-Public Use
  Company Number: US-IPSEN BIOPHARMACEUTICALS, INC.-2018-17061

PATIENT
  Age: 50 Year
  Sex: Male

DRUGS (4)
  1. LIPOSOMAL IRINOTECAN [Suspect]
     Active Substance: IRINOTECAN HYDROCHLORIDE
     Indication: PANCREATIC CARCINOMA
     Dosage: FOLFIRINOX THERAPY
     Dates: start: 2017
  2. FOLINIC ACID [Suspect]
     Active Substance: LEUCOVORIN
     Indication: PANCREATIC CARCINOMA
     Dosage: FOLFIRINOX THERAPY
     Dates: start: 2017
  3. FLUOROURACIL. [Suspect]
     Active Substance: FLUOROURACIL
     Indication: PANCREATIC CARCINOMA
     Dosage: FOLFIRINOX THERAPY
     Dates: start: 2017
  4. OXALIPLATIN. [Suspect]
     Active Substance: OXALIPLATIN
     Indication: PANCREATIC CARCINOMA
     Dosage: FOLFOX THERAPY
     Dates: start: 2017

REACTIONS (1)
  - Nicotinic acid deficiency [Recovering/Resolving]

NARRATIVE: CASE EVENT DATE: 201708
